FAERS Safety Report 17695238 (Version 2)
Quarter: 2020Q2

REPORT INFORMATION
  Report Type: Spontaneous
  Country: US (occurrence: US)
  Receive Date: 20200422
  Receipt Date: 20200513
  Transmission Date: 20200714
  Serious: Yes (Death, Other)
  Sender: FDA-Public Use
  Company Number: US-ACTELION-A-NJ2020-204282

PATIENT
  Age: 92 Year
  Sex: Female

DRUGS (1)
  1. TRACLEER [Suspect]
     Active Substance: BOSENTAN
     Indication: PRODUCT USED FOR UNKNOWN INDICATION
     Dosage: 125 MG, BID
     Route: 048
     Dates: start: 20100827, end: 20200413

REACTIONS (3)
  - Hip fracture [Unknown]
  - Death [Fatal]
  - Hip surgery [Unknown]

NARRATIVE: CASE EVENT DATE: 20200412
